FAERS Safety Report 5720443-3 (Version None)
Quarter: 2008Q2

REPORT INFORMATION
  Report Type: 
  Country: None (occurrence: None)
  Receive Date: 20080428
  Receipt Date: 20080416
  Transmission Date: 20081010
  Serious: Yes (Other)
  Sender: FDA-Public Use
  Company Number: US-ELI_LILLY_AND_COMPANY-US200804004447

PATIENT
  Sex: Female

DRUGS (4)
  1. PROZAC [Suspect]
     Indication: DEPRESSION
     Dosage: 40 MG, DAILY (1/D)
     Dates: start: 20050101
  2. PROZAC [Suspect]
     Dosage: 40 MG, 2/D
     Dates: start: 20080101, end: 20080402
  3. STRATTERA [Suspect]
  4. ANTIBIOTICS [Concomitant]

REACTIONS (11)
  - AMNESIA [None]
  - BLOOD PRESSURE INCREASED [None]
  - DIZZINESS [None]
  - DRUG WITHDRAWAL HEADACHE [None]
  - FOOD CRAVING [None]
  - HUNGER [None]
  - SINUS BRADYCARDIA [None]
  - SYNCOPE [None]
  - THIRST [None]
  - TOOTH ABSCESS [None]
  - VENTRICULAR EXTRASYSTOLES [None]
